FAERS Safety Report 9189168 (Version 3)
Quarter: 2013Q2

REPORT INFORMATION
  Report Type: Report from Study
  Country: CZ (occurrence: CZ)
  Receive Date: 20130326
  Receipt Date: 20130527
  Transmission Date: 20140414
  Serious: Yes (Hospitalization)
  Sender: FDA-Public Use
  Company Number: CZ-BIOGENIDEC-2013BI026774

PATIENT
  Age: 45 Year
  Sex: Female

DRUGS (4)
  1. TYSABRI [Suspect]
     Indication: RELAPSING-REMITTING MULTIPLE SCLEROSIS
     Route: 042
     Dates: start: 20110829, end: 201203
  2. TRAMADOL [Concomitant]
  3. DIPIDOLOR [Concomitant]
  4. CLEXANE [Concomitant]

REACTIONS (1)
  - No adverse event [Recovered/Resolved]
